FAERS Safety Report 11314252 (Version 2)
Quarter: 2015Q3

REPORT INFORMATION
  Report Type: Spontaneous
  Country: JP (occurrence: JP)
  Receive Date: 20150727
  Receipt Date: 20150811
  Transmission Date: 20151125
  Serious: Yes (Life-Threatening, Other)
  Sender: FDA-Public Use
  Company Number: JP-GLAXOSMITHKLINE-JP2015JPN082141

PATIENT
  Age: 70 Year
  Sex: Male
  Weight: 42 kg

DRUGS (14)
  1. MAINTATE [Concomitant]
     Active Substance: BISOPROLOL FUMARATE
  2. METGLUCO [Concomitant]
     Active Substance: METFORMIN HYDROCHLORIDE
  3. PARLODEL [Concomitant]
     Active Substance: BROMOCRIPTINE MESYLATE
  4. BESACOLIN [Concomitant]
     Active Substance: BETHANECHOL CHLORIDE
  5. GLACTIV [Concomitant]
     Active Substance: SITAGLIPTIN
  6. BIOFERMIN [Concomitant]
     Active Substance: BACILLUS SUBTILIS\LACTOBACILLUS ACIDOPHILUS\STREPTOCOCCUS FAECAIS
  7. LUNESTA [Concomitant]
     Active Substance: ESZOPICLONE
  8. LAMICTAL [Suspect]
     Active Substance: LAMOTRIGINE
     Indication: BIPOLAR DISORDER
     Dosage: 25 MG, QD
     Route: 048
     Dates: start: 20150529, end: 20150611
  9. UNISIA [Concomitant]
     Active Substance: AMLODIPINE BESYLATE\CANDESARTAN CILEXETIL
  10. REFLEX [Suspect]
     Active Substance: MIRTAZAPINE
     Route: 048
  11. URIEF [Concomitant]
     Active Substance: SILODOSIN
  12. DEPAS [Concomitant]
     Active Substance: ETIZOLAM
  13. LONASEN [Concomitant]
     Active Substance: BLONANSERIN
     Dosage: UNK, PRN
  14. LEXOTAN [Concomitant]
     Active Substance: BROMAZEPAM

REACTIONS (5)
  - White blood cell count decreased [Recovered/Resolved]
  - Neutrophil count decreased [Recovering/Resolving]
  - Pyrexia [Recovered/Resolved]
  - Rash generalised [Recovered/Resolved]
  - Pruritus generalised [Unknown]

NARRATIVE: CASE EVENT DATE: 20150604
